FAERS Safety Report 5012064-5 (Version None)
Quarter: 2006Q2

REPORT INFORMATION
  Report Type: 
  Country: None (occurrence: None)
  Receive Date: 20060526
  Receipt Date: 20060518
  Transmission Date: 20061013
  Serious: Yes (Hospitalization)
  Sender: FDA-Public Use
  Company Number: GB-GLAXOSMITHKLINE-B0424473A

PATIENT
  Age: 20 Year
  Sex: Male

DRUGS (1)
  1. SEROXAT [Suspect]
     Indication: DEPRESSION
     Route: 048
     Dates: start: 20060301, end: 20060416

REACTIONS (3)
  - LOSS OF CONSCIOUSNESS [None]
  - MUSCLE SPASMS [None]
  - TREMOR [None]
